FAERS Safety Report 6907068-9 (Version None)
Quarter: 2010Q3

REPORT INFORMATION
  Report Type: 
  Country: None (occurrence: None)
  Receive Date: 20100804
  Receipt Date: 20080828
  Transmission Date: 20110219
  Serious: No
  Sender: FDA-Public Use
  Company Number: US-PFIZER INC-2007108214

PATIENT
  Sex: Male
  Weight: 69.85 kg

DRUGS (5)
  1. NARDIL [Suspect]
     Indication: ANXIETY
     Dates: start: 19890101
  2. NARDIL [Suspect]
     Indication: PANIC ATTACK
  3. XANAX [Suspect]
     Indication: PANIC ATTACK
     Dates: start: 19890101
  4. ACIPHEX [Concomitant]
  5. ACETYLSALICYLIC ACID SRT [Concomitant]

REACTIONS (3)
  - GLUCOSE TOLERANCE IMPAIRED [None]
  - MUSCLE SPASMS [None]
  - NECK PAIN [None]
